FAERS Safety Report 7656802-1 (Version None)
Quarter: 2011Q3

REPORT INFORMATION
  Report Type: 
  Country: None (occurrence: None)
  Receive Date: 20110801
  Receipt Date: 20110714
  Transmission Date: 20111222
  Serious: Yes (Hospitalization, Other)
  Sender: FDA-Public Use
  Company Number: 2011MA008886

PATIENT
  Age: 75 Year
  Sex: Female

DRUGS (4)
  1. METFORMIN HCL [Suspect]
     Indication: DIABETES MELLITUS
  2. METRONIDAZOLE [Concomitant]
  3. ACETAMINOPHEN [Concomitant]
  4. OXYCODONE HCL [Concomitant]

REACTIONS (12)
  - SHOCK [None]
  - LACTIC ACIDOSIS [None]
  - CLOSTRIDIUM DIFFICILE COLITIS [None]
  - ASPARTATE AMINOTRANSFERASE INCREASED [None]
  - DECREASED APPETITE [None]
  - OLIGURIA [None]
  - TOXICITY TO VARIOUS AGENTS [None]
  - PANCREATITIS ACUTE [None]
  - HYPOTHERMIA [None]
  - URINARY TRACT INFECTION [None]
  - HAEMODIALYSIS [None]
  - HYPERGLYCAEMIA [None]
